FAERS Safety Report 4492889-5 (Version None)
Quarter: 2004Q4

REPORT INFORMATION
  Report Type: 
  Country: None (occurrence: None)
  Receive Date: 20041104
  Receipt Date: 20041102
  Transmission Date: 20050328
  Serious: Yes (Death, Hospitalization)
  Sender: FDA-Public Use
  Company Number: DE-BRISTOL-MYERS SQUIBB COMPANY-12753604

PATIENT
  Age: 70 Year
  Sex: Male
  Weight: 68 kg

DRUGS (7)
  1. PACLITAXEL [Suspect]
     Indication: NON-SMALL CELL LUNG CANCER
     Dosage: THERAPY DATES: 25 AND 26-SEP-2004
     Route: 036
     Dates: start: 20040926, end: 20040926
  2. CISPLATIN [Suspect]
     Indication: NON-SMALL CELL LUNG CANCER
     Dosage: THERAPY DATES: 25 AND 26-SEP-2004
     Route: 042
     Dates: start: 20040926, end: 20040926
  3. DEXAMETHASONE [Concomitant]
     Indication: PREMEDICATION
     Dates: start: 20040924, end: 20041002
  4. DIMETINDENE [Concomitant]
     Indication: PREMEDICATION
     Dates: start: 20040925
  5. RANITIDINE [Concomitant]
     Indication: PREMEDICATION
     Dosage: 1 AMPULE
     Dates: start: 20040925
  6. METAMIZOLE [Concomitant]
     Indication: ABDOMINAL PAIN UPPER
     Dates: start: 20040924, end: 20041002
  7. SPIRONOLACTONE + FUROSEMIDE [Concomitant]
     Indication: OEDEMA
     Dates: start: 20040928, end: 20041002

REACTIONS (4)
  - DYSPNOEA [None]
  - PANCYTOPENIA [None]
  - PYREXIA [None]
  - SEPSIS [None]
